FAERS Safety Report 12724055 (Version 1)
Quarter: 2016Q3

REPORT INFORMATION
  Report Type: Spontaneous
  Country: US (occurrence: US)
  Receive Date: 20160902
  Receipt Date: 20160902
  Transmission Date: 20161109
  Serious: Yes (Hospitalization)
  Sender: FDA-Public Use
  Company Number: None

PATIENT
  Age: 36 Year
  Sex: Female
  Weight: 135.9 kg

DRUGS (3)
  1. ENOXAPARIN [Suspect]
     Active Substance: ENOXAPARIN
     Indication: DEEP VEIN THROMBOSIS
     Route: 058
     Dates: start: 20160707, end: 20160708
  2. ENOXAPARIN [Suspect]
     Active Substance: ENOXAPARIN
     Indication: THERAPEUTIC PROCEDURE
     Route: 058
     Dates: start: 20160707, end: 20160708
  3. WARFARIN [Suspect]
     Active Substance: WARFARIN
     Indication: DEEP VEIN THROMBOSIS
     Route: 048
     Dates: start: 20150210, end: 20150708

REACTIONS (4)
  - Deep vein thrombosis [None]
  - Compartment syndrome [None]
  - Haemorrhage [None]
  - Paraesthesia [None]

NARRATIVE: CASE EVENT DATE: 20160708
